FAERS Safety Report 9769651 (Version 1)
Quarter: 2013Q4

REPORT INFORMATION
  Report Type: Spontaneous
  Country: US (occurrence: US)
  Receive Date: 20131218
  Receipt Date: 20131218
  Transmission Date: 20140711
  Serious: Yes (Other)
  Sender: FDA-Public Use
  Company Number: CHPA2013US018544

PATIENT
  Age: 72 Year
  Sex: Female

DRUGS (3)
  1. TRIAMINIC NIGHT TIME COLD + COUGH [Suspect]
     Indication: MULTIPLE ALLERGIES
     Dosage: 1 TSP, PRN
     Route: 048
  2. TRIAMINIC NIGHT TIME COLD + COUGH [Suspect]
     Indication: OFF LABEL USE
  3. TRIAMINIC NIGHT TIME COLD + COUGH [Suspect]
     Indication: SINUS DISORDER

REACTIONS (3)
  - Glaucoma [Unknown]
  - Therapeutic response unexpected [Unknown]
  - Underdose [Unknown]
